FAERS Safety Report 7306684-2 (Version None)
Quarter: 2011Q1

REPORT INFORMATION
  Report Type: 
  Country: None (occurrence: None)
  Receive Date: 20110222
  Receipt Date: 20110211
  Transmission Date: 20110831
  Serious: Yes (Hospitalization)
  Sender: FDA-Public Use
  Company Number: US-US-EMD SERONO, INC.-7041869

PATIENT
  Sex: Female

DRUGS (2)
  1. REBIF [Suspect]
     Indication: PRODUCT USED FOR UNKNOWN INDICATION
     Route: 058
     Dates: start: 20021110, end: 20030101
  2. REBIF [Suspect]
     Route: 058
     Dates: start: 20030101

REACTIONS (3)
  - MIGRAINE [None]
  - INJECTION SITE ERYTHEMA [None]
  - OPTIC NEURITIS [None]
